FAERS Safety Report 25629884 (Version 1)
Quarter: 2025Q3

REPORT INFORMATION
  Report Type: Spontaneous
  Country: GB (occurrence: GB)
  Receive Date: 20250731
  Receipt Date: 20250731
  Transmission Date: 20251021
  Serious: Yes (Hospitalization, Other)
  Sender: SANOFI AVENTIS
  Company Number: GB-MHRA-TPP25616441C10764141YC1753684706568

PATIENT
  Age: 78 Year
  Sex: Female
  Weight: 55 kg

DRUGS (13)
  1. RIFAMPIN [Suspect]
     Active Substance: RIFAMPIN
     Indication: Ill-defined disorder
     Route: 048
     Dates: start: 20250507, end: 20250518
  2. ETHAMBUTOL [Suspect]
     Active Substance: ETHAMBUTOL HYDROCHLORIDE
     Indication: Ill-defined disorder
     Route: 048
     Dates: start: 20250508, end: 20250518
  3. BETAMETHASONE VALERATE [Concomitant]
     Active Substance: BETAMETHASONE VALERATE
     Indication: Ill-defined disorder
     Dosage: UNK, BID(POTENT STEROID CREAM - APPLY TWICE A DAY)
     Dates: start: 20250430, end: 20250507
  4. PYRIDOXINE [Concomitant]
     Active Substance: PYRIDOXINE
     Indication: Ill-defined disorder
     Dosage: 2 DF, QD(TAKE TWO TABLETS DAILY)
     Dates: start: 20250724
  5. CYCLOSERINE [Concomitant]
     Active Substance: CYCLOSERINE
     Indication: Ill-defined disorder
     Dosage: 1 DF, QD(TAKE ONE TABLET DAILY)
     Dates: start: 20250724
  6. CLOFAZIMINE [Concomitant]
     Active Substance: CLOFAZIMINE
     Indication: Ill-defined disorder
     Dosage: 2 DF, QD(TAKE TWO TABLETS DAILY
     Dates: start: 20250724
  7. LINEZOLID [Concomitant]
     Active Substance: LINEZOLID
     Indication: Ill-defined disorder
     Dosage: 1 DF, QD(TAKE ONE TABLET DAILY)
     Dates: start: 20250724
  8. MOXIFLOXACIN [Concomitant]
     Active Substance: MOXIFLOXACIN
     Indication: Ill-defined disorder
     Dosage: 1 DF, QD(TAKE ONE TABLET DAILY)
     Dates: start: 20250724
  9. BEDAQUILINE [Concomitant]
     Active Substance: BEDAQUILINE
     Indication: Ill-defined disorder
     Dosage: 2 DF TIW (TAKE TWO TABLETS THREE TIMES A WEEK)
     Dates: start: 20250724
  10. CALCIUM CARBONATE\CHOLECALCIFEROL [Concomitant]
     Active Substance: CALCIUM CARBONATE\CHOLECALCIFEROL
     Indication: Ill-defined disorder
     Dosage: 1 DF, QD (TAKE ONE DAILY)
     Dates: start: 20231003
  11. FELODIPINE [Concomitant]
     Active Substance: FELODIPINE
     Indication: Ill-defined disorder
     Dosage: 1 DF, QD(TAKE ONE DAILY)
     Dates: start: 20240430, end: 20250624
  12. SYMBICORT [Concomitant]
     Active Substance: BUDESONIDE\FORMOTEROL FUMARATE DIHYDRATE
     Indication: Ill-defined disorder
     Dosage: UNK, BID(INHALE ONE PUFF TWICE A DAY FOR SYMPTOM MAINTEN)
     Dates: start: 20240531
  13. PROLIA [Concomitant]
     Active Substance: DENOSUMAB
     Indication: Ill-defined disorder
     Dates: start: 20241015

REACTIONS (2)
  - Optic neuritis [Recovered/Resolved]
  - Drug reaction with eosinophilia and systemic symptoms [Recovered/Resolved]

NARRATIVE: CASE EVENT DATE: 20250508
